FAERS Safety Report 9348111 (Version 1)
Quarter: 2013Q2

REPORT INFORMATION
  Report Type: Spontaneous
  Country: HK (occurrence: HK)
  Receive Date: 20130614
  Receipt Date: 20130614
  Transmission Date: 20140414
  Serious: Yes (Death, Other)
  Sender: FDA-Public Use
  Company Number: HK-JNJFOC-20130602749

PATIENT
  Age: 47 Year
  Sex: Male

DRUGS (3)
  1. ITRACONAZOLE [Suspect]
     Indication: ANTIFUNGAL PROPHYLAXIS
     Dosage: 10 DAYS
     Route: 048
  2. VORICONAZOLE [Suspect]
     Indication: CANDIDA INFECTION
     Dosage: 10 DAYS
     Route: 065
  3. GRANULOCYTE COLONY-STIMULATING FACTOR [Concomitant]
     Indication: NEUTROPENIA
     Route: 065

REACTIONS (2)
  - Candida infection [Unknown]
  - Bacterial sepsis [Fatal]
